FAERS Safety Report 6327848-0 (Version None)
Quarter: 2009Q3

REPORT INFORMATION
  Report Type: 
  Country: None (occurrence: None)
  Receive Date: 20090824
  Receipt Date: 20090812
  Transmission Date: 20100115
  Serious: Yes (Other)
  Sender: FDA-Public Use
  Company Number: 2009AP003263

PATIENT

DRUGS (2)
  1. LAMOTRIGINE [Suspect]
     Dosage: 550 MG;TRPL;QD
     Route: 064
  2. FOLIC ACID [Concomitant]

REACTIONS (4)
  - ABORTION INDUCED [None]
  - MATERNAL DRUGS AFFECTING FOETUS [None]
  - NEURAL TUBE DEFECT [None]
  - SPINA BIFIDA [None]
